FAERS Safety Report 6430465-5 (Version None)
Quarter: 2009Q4

REPORT INFORMATION
  Report Type: 
  Country: None (occurrence: None)
  Receive Date: 20091106
  Receipt Date: 20091030
  Transmission Date: 20100525
  Serious: Yes (Hospitalization)
  Sender: FDA-Public Use
  Company Number: US-ELI_LILLY_AND_COMPANY-US200905001890

PATIENT
  Age: 55 Year
  Sex: Female

DRUGS (4)
  1. BYETTA [Suspect]
     Indication: TYPE 2 DIABETES MELLITUS
     Dosage: 5 UG, UNK
     Route: 058
  2. BYETTA [Suspect]
     Dosage: 10 UG, UNK
     Route: 058
     Dates: start: 20070101
  3. LUNESTA [Concomitant]
     Indication: SLEEP DISORDER
  4. CHOLESTEROL- AND TRIGLYCERIDE REDUCERS [Concomitant]
     Indication: BLOOD CHOLESTEROL INCREASED

REACTIONS (8)
  - ABDOMINAL DISCOMFORT [None]
  - BLOOD PRESSURE ABNORMAL [None]
  - FATIGUE [None]
  - GASTROENTERITIS VIRAL [None]
  - INFLUENZA [None]
  - NASOPHARYNGITIS [None]
  - PNEUMONIA [None]
  - SLEEP DISORDER [None]
